FAERS Safety Report 7425820-0 (Version None)
Quarter: 2011Q2

REPORT INFORMATION
  Report Type: 
  Country: None (occurrence: None)
  Receive Date: 20110420
  Receipt Date: 20110302
  Transmission Date: 20111010
  Serious: No
  Sender: FDA-Public Use
  Company Number: US-MYLANLABS-2011S1004407

PATIENT
  Age: 23 Year
  Sex: Male
  Weight: 63.5 kg

DRUGS (3)
  1. BENADRYL [Concomitant]
     Indication: INSOMNIA
     Dosage: PRN
  2. DIVALPROEX SODIUM EXTENDED RELEASE [Suspect]
     Indication: OBSESSIVE-COMPULSIVE DISORDER
     Route: 048
     Dates: start: 20110201
  3. CELEXA [Concomitant]
     Indication: OBSESSIVE-COMPULSIVE DISORDER

REACTIONS (3)
  - INCREASED APPETITE [None]
  - SUICIDAL IDEATION [None]
  - ABNORMAL DREAMS [None]
